FAERS Safety Report 4633233-X (Version None)
Quarter: 2005Q2

REPORT INFORMATION
  Report Type: 
  Country: None (occurrence: None)
  Receive Date: 20050412
  Receipt Date: 20050412
  Transmission Date: 20051028
  Serious: Yes (Other)
  Sender: FDA-Public Use
  Company Number: None

PATIENT
  Age: 57 Year
  Sex: Female
  Weight: 57.1532 kg

DRUGS (1)
  1. ZOMETA [Suspect]
     Indication: OSTEOPOROSIS
     Dosage: 2MG-INFUSION-041
     Dates: start: 20040714

REACTIONS (9)
  - BALANCE DISORDER [None]
  - DIZZINESS [None]
  - DYSKINESIA [None]
  - HYPOAESTHESIA [None]
  - MIGRAINE [None]
  - PAIN [None]
  - SENSATION OF PRESSURE [None]
  - TREMOR [None]
  - VERTIGO [None]
